FAERS Safety Report 4990097-2 (Version None)
Quarter: 2006Q2

REPORT INFORMATION
  Report Type: 
  Country: None (occurrence: None)
  Receive Date: 20060501
  Receipt Date: 20060501
  Transmission Date: 20061013
  Serious: Yes (Hospitalization)
  Sender: FDA-Public Use
  Company Number: None

PATIENT
  Age: 48 Year
  Sex: Female
  Weight: 52 kg

DRUGS (3)
  1. BUPROPION HCL [Suspect]
     Indication: SMOKING CESSATION THERAPY
     Dosage: 150 MG BID PO
     Route: 048
     Dates: start: 20051219, end: 20051225
  2. PREDNISONE [Suspect]
     Indication: CHRONIC OBSTRUCTIVE PULMONARY DISEASE
     Dosage: 30 MG QD PO
     Route: 048
     Dates: start: 20051218, end: 20060105
  3. PREDNISONE [Suspect]
     Indication: PNEUMONIA
     Dosage: 30 MG QD PO
     Route: 048
     Dates: start: 20051218, end: 20060105

REACTIONS (7)
  - CONFUSIONAL STATE [None]
  - CONVULSION [None]
  - DRUG INTERACTION [None]
  - FEELING ABNORMAL [None]
  - INITIAL INSOMNIA [None]
  - IRRITABILITY [None]
  - RESPIRATORY ARREST [None]
